FAERS Safety Report 5162537-X (Version None)
Quarter: 2006Q4

REPORT INFORMATION
  Report Type: 
  Country: None (occurrence: None)
  Receive Date: 20061201
  Receipt Date: 20061124
  Transmission Date: 20070319
  Serious: Yes (Hospitalization)
  Sender: FDA-Public Use
  Company Number: FR-BOEHRINGER INGELHEIM PHARMACEUTICALS, INC.-2006-BP-13885YA

PATIENT
  Sex: Male
  Weight: 67 kg

DRUGS (10)
  1. OMIX L.P. [Suspect]
     Route: 048
  2. NEORAL [Suspect]
     Route: 048
     Dates: start: 20060914
  3. CELLCEPT [Suspect]
     Route: 048
     Dates: start: 20060914
  4. VFEND [Suspect]
     Route: 048
     Dates: start: 20060914, end: 20061018
  5. ROVALCYTE (VALGANCICLOVIR) [Concomitant]
     Route: 065
     Dates: start: 20060914
  6. LEVOTHYROXINE SODIUM [Concomitant]
     Route: 065
  7. LASIX [Concomitant]
     Route: 065
  8. INSULIN [Concomitant]
     Route: 065
  9. MORPHINE SULFATE [Concomitant]
     Route: 065
  10. DAFALGAN (PARACETAMOL) [Concomitant]
     Route: 065

REACTIONS (1)
  - BLOOD BILIRUBIN INCREASED [None]
